FAERS Safety Report 21051986 (Version 1)
Quarter: 2022Q3

REPORT INFORMATION
  Report Type: Report from Study
  Country: CA (occurrence: CA)
  Receive Date: 20220707
  Receipt Date: 20220707
  Transmission Date: 20221027
  Serious: Yes (Other)
  Sender: FDA-Public Use
  Company Number: CA-JNJFOC-20220321697

PATIENT
  Age: 61 Year
  Sex: Female
  Weight: 92 kg

DRUGS (1)
  1. STELARA [Suspect]
     Active Substance: USTEKINUMAB
     Indication: Crohn^s disease
     Dosage: EXPIRY: 30-OCT-2024?EXPIRY: 01-JAN-2025
     Route: 058

REACTIONS (5)
  - Swollen tongue [Recovered/Resolved]
  - Pharyngeal swelling [Recovered/Resolved]
  - Dry throat [Recovering/Resolving]
  - Dysphagia [Recovering/Resolving]
  - Pharyngitis [Unknown]

NARRATIVE: CASE EVENT DATE: 20220503
